FAERS Safety Report 5553469-3 (Version None)
Quarter: 2007Q4

REPORT INFORMATION
  Report Type: 
  Country: None (occurrence: None)
  Receive Date: 20071213
  Receipt Date: 20071203
  Transmission Date: 20080405
  Serious: Yes (Other)
  Sender: FDA-Public Use
  Company Number: US-JNJFOC-20071003506

PATIENT
  Sex: Male
  Weight: 89.36 kg

DRUGS (7)
  1. REMICADE [Suspect]
     Route: 042
  2. REMICADE [Suspect]
     Indication: RHEUMATOID ARTHRITIS
     Dosage: }40
     Route: 042
  3. METHOTREXATE [Concomitant]
  4. PREDNISONE [Concomitant]
  5. DARVOCET [Concomitant]
  6. NORFLEX [Concomitant]
  7. DESYREL [Concomitant]

REACTIONS (4)
  - DISSEMINATED TUBERCULOSIS [None]
  - HISTOPLASMOSIS [None]
  - PULMONARY TUBERCULOSIS [None]
  - TUBERCULOSIS GASTROINTESTINAL [None]
